FAERS Safety Report 21600696 (Version 1)
Quarter: 2022Q4

REPORT INFORMATION
  Report Type: Other
  Country: CA (occurrence: CA)
  Receive Date: 20221116
  Receipt Date: 20221116
  Transmission Date: 20230113
  Serious: Yes (Other)
  Sender: FDA-Public Use
  Company Number: CA-CELLTRION INC.-2022CA018908

PATIENT

DRUGS (13)
  1. RITUXIMAB [Suspect]
     Active Substance: RITUXIMAB
     Indication: Rheumatoid arthritis
     Route: 041
  2. ACETAMINOPHEN [Concomitant]
     Active Substance: ACETAMINOPHEN
     Indication: Premedication
     Route: 048
  3. ACETAMINOPHEN [Concomitant]
     Active Substance: ACETAMINOPHEN
     Indication: Headache
  4. ACETAMINOPHEN [Concomitant]
     Active Substance: ACETAMINOPHEN
     Indication: Premedication
     Route: 065
  5. ACETAMINOPHEN [Concomitant]
     Active Substance: ACETAMINOPHEN
     Indication: Headache
  6. ATORVASTATIN [Concomitant]
     Active Substance: ATORVASTATIN
     Route: 048
  7. DEXILANT [Concomitant]
     Active Substance: DEXLANSOPRAZOLE
  8. DIPHENHYDRAMINE [Concomitant]
     Active Substance: DIPHENHYDRAMINE
     Indication: Premedication
     Route: 048
  9. DOCUSATE CALCIUM [Concomitant]
     Active Substance: DOCUSATE CALCIUM
  10. FOLIC ACID [Concomitant]
     Active Substance: FOLIC ACID
  11. METHOTREXATE [Concomitant]
     Active Substance: METHOTREXATE
     Route: 048
  12. METHYLPREDNISOLONE [Concomitant]
     Active Substance: METHYLPREDNISOLONE
     Indication: Premedication
     Route: 042
  13. VENLAFAXINE [Concomitant]
     Active Substance: VENLAFAXINE HYDROCHLORIDE
     Indication: Hormone replacement therapy

REACTIONS (2)
  - Immunodeficiency [Unknown]
  - Cellulitis [Unknown]
